FAERS Safety Report 17208319 (Version 6)
Quarter: 2022Q3

REPORT INFORMATION
  Report Type: Report from Study
  Country: JP (occurrence: JP)
  Receive Date: 20191227
  Receipt Date: 20220704
  Transmission Date: 20221027
  Serious: Yes (Hospitalization, Other)
  Sender: FDA-Public Use
  Company Number: JP-ALNYLAM PHARMACEUTICALS, INC.-ALN-2019-001010

PATIENT

DRUGS (36)
  1. ONPATTRO [Suspect]
     Active Substance: PATISIRAN SODIUM
     Indication: Hereditary neuropathic amyloidosis
     Dosage: 16.8 MILLIGRAM
     Route: 041
     Dates: start: 20191126, end: 20191126
  2. ONPATTRO [Suspect]
     Active Substance: PATISIRAN SODIUM
     Dosage: 16.8 MILLIGRAM
     Route: 041
     Dates: start: 20191224, end: 20200114
  3. ONPATTRO [Suspect]
     Active Substance: PATISIRAN SODIUM
     Dosage: 16.2 MILLIGRAM
     Route: 041
     Dates: start: 20200204, end: 20200226
  4. ONPATTRO [Suspect]
     Active Substance: PATISIRAN SODIUM
     Dosage: 15.9 MILLIGRAM
     Route: 041
     Dates: start: 20200318, end: 20200318
  5. ONPATTRO [Suspect]
     Active Substance: PATISIRAN SODIUM
     Dosage: 16.2 MILLIGRAM
     Route: 041
     Dates: start: 20200408, end: 20200519
  6. ONPATTRO [Suspect]
     Active Substance: PATISIRAN SODIUM
     Dosage: 15.0 MILLIGRAM
     Route: 041
     Dates: start: 20200618, end: 20200618
  7. GASTER [Concomitant]
     Active Substance: FAMOTIDINE
     Indication: Prophylaxis
     Dosage: 20 MILLIGRAM, SINGLE
     Route: 041
     Dates: start: 20191126, end: 20191126
  8. GASTER [Concomitant]
     Active Substance: FAMOTIDINE
     Indication: Prophylaxis
     Dosage: 20 MILLIGRAM, SINGLE
     Route: 065
     Dates: start: 20191224
  9. POLARAMINE [Concomitant]
     Active Substance: DEXCHLORPHENIRAMINE MALEATE
     Indication: Prophylaxis
     Dosage: 5 MILLIGRAM, SINGLE
     Route: 042
     Dates: start: 20191126, end: 20191126
  10. POLARAMINE [Concomitant]
     Active Substance: DEXCHLORPHENIRAMINE MALEATE
     Indication: Prophylaxis
     Dosage: 5 MILLIGRAM, SINGLE
     Route: 065
     Dates: start: 20191224
  11. DEXAMETHASONE SODIUM PHOSPHATE [Concomitant]
     Active Substance: DEXAMETHASONE SODIUM PHOSPHATE
     Indication: Prophylaxis
     Dosage: 9.9 MILLIGRAM, SINGLE
     Route: 042
     Dates: start: 20191126, end: 20191126
  12. DEXAMETHASONE SODIUM PHOSPHATE [Concomitant]
     Active Substance: DEXAMETHASONE SODIUM PHOSPHATE
     Indication: Prophylaxis
     Dosage: 9.9 MILLIGRAM, SINGLE
     Route: 065
     Dates: start: 20191224
  13. CALONAL [Concomitant]
     Active Substance: ACETAMINOPHEN
     Indication: Prophylaxis
     Dosage: 500 MILLIGRAM
     Route: 048
     Dates: start: 20191126
  14. CALONAL [Concomitant]
     Active Substance: ACETAMINOPHEN
     Dosage: 500 MILLIGRAM, SINGLE
     Route: 065
     Dates: start: 20191224
  15. VITAMINS [Concomitant]
     Active Substance: VITAMINS
     Indication: Vitamin supplementation
     Dosage: 1 GRAM, SINGLE
     Route: 048
     Dates: start: 20191126
  16. VITAMINS [Concomitant]
     Active Substance: VITAMINS
     Indication: Prophylaxis
     Dosage: 1 GRAM, QD
     Route: 065
  17. NEXIUM [Concomitant]
     Active Substance: ESOMEPRAZOLE MAGNESIUM
     Indication: Hereditary neuropathic amyloidosis
     Dosage: 20 MILLIGRAM
     Route: 065
  18. NEXIUM [Concomitant]
     Active Substance: ESOMEPRAZOLE MAGNESIUM
     Indication: Abdominal discomfort
     Dosage: 20 MILLIGRAM, QD
     Route: 065
  19. MIDODRINE HYDROCHLORIDE [Concomitant]
     Active Substance: MIDODRINE HYDROCHLORIDE
     Indication: Hereditary neuropathic amyloidosis
     Dosage: 1 MILLIGRAM, BID
     Route: 065
  20. MIDODRINE HYDROCHLORIDE [Concomitant]
     Active Substance: MIDODRINE HYDROCHLORIDE
     Indication: Abdominal discomfort
     Dosage: 2 MILLIGRAM, TWICE
     Route: 065
  21. MIDODRINE HYDROCHLORIDE [Concomitant]
     Active Substance: MIDODRINE HYDROCHLORIDE
     Dosage: 2 MILLIGRAM, BID
     Route: 065
  22. TEPRENONE [Concomitant]
     Active Substance: TEPRENONE
     Indication: Hereditary neuropathic amyloidosis
     Dosage: 50 MILLIGRAM, TID
     Route: 048
  23. TEPRENONE [Concomitant]
     Active Substance: TEPRENONE
     Indication: Abdominal discomfort
  24. TEPRENONE [Concomitant]
     Active Substance: TEPRENONE
     Indication: Hereditary neuropathic amyloidosis
     Dosage: 50 MILLIGRAM, TID
     Route: 048
  25. MOSAPRIDE CITRATE [Concomitant]
     Active Substance: MOSAPRIDE CITRATE
     Indication: Hereditary neuropathic amyloidosis
     Dosage: 5 MILLIGRAM, THREE TIMES
     Route: 065
  26. MOSAPRIDE CITRATE [Concomitant]
     Active Substance: MOSAPRIDE CITRATE
     Indication: Abdominal discomfort
     Dosage: 5 MILLIGRAM, TID
     Route: 065
  27. TOVIAZ [Concomitant]
     Active Substance: FESOTERODINE FUMARATE
     Indication: Hereditary neuropathic amyloidosis
     Dosage: 4 MILLIGRAM
     Route: 048
  28. TOVIAZ [Concomitant]
     Active Substance: FESOTERODINE FUMARATE
     Indication: Abdominal discomfort
     Dosage: 4 MILLIGRAM, QD
     Route: 065
  29. MOSAPRIDE CITRATE [Concomitant]
     Active Substance: MOSAPRIDE CITRATE
     Indication: Hereditary neuropathic amyloidosis
     Dosage: 5 MILLIGRAM, TID
     Route: 048
  30. MOSAPRIDE CITRATE [Concomitant]
     Active Substance: MOSAPRIDE CITRATE
     Indication: Abdominal discomfort
  31. ELOBIXIBAT [Concomitant]
     Active Substance: ELOBIXIBAT
     Indication: Hereditary neuropathic amyloidosis
     Dosage: 5 MILLIGRAM, BID
     Route: 048
  32. ELOBIXIBAT [Concomitant]
     Active Substance: ELOBIXIBAT
     Indication: Abdominal discomfort
     Dosage: 10 MILLIGRAM, QD
     Route: 065
  33. Ozex [Concomitant]
     Indication: Infected dermal cyst
     Dosage: 150 MILLIGRAM, TID
     Route: 065
     Dates: end: 20191225
  34. VESICARE [Concomitant]
     Active Substance: SOLIFENACIN SUCCINATE
     Indication: Hereditary neuropathic amyloidosis
     Dosage: 2.5 MILLIGRAM
     Route: 048
  35. VESICARE [Concomitant]
     Active Substance: SOLIFENACIN SUCCINATE
     Indication: Abdominal discomfort
     Dosage: 2.5 MILLIGRAM, QD
     Route: 065
  36. NAUZELIN [Concomitant]
     Active Substance: DOMPERIDONE
     Indication: Hereditary neuropathic amyloidosis
     Dosage: 60 MILLIGRAM, PRN
     Route: 065

REACTIONS (13)
  - Infusion related reaction [Recovering/Resolving]
  - Vomiting [Recovering/Resolving]
  - White blood cell count increased [Recovered/Resolved]
  - Anaphylactoid reaction [Recovering/Resolving]
  - Nausea [Recovered/Resolved]
  - Nausea [Recovered/Resolved]
  - Abdominal pain upper [Recovered/Resolved]
  - Chest discomfort [Recovered/Resolved]
  - Vomiting [Recovering/Resolving]
  - Urticaria [Recovering/Resolving]
  - Erythema [Recovering/Resolving]
  - Cough [Recovering/Resolving]
  - Nausea [Recovered/Resolved]

NARRATIVE: CASE EVENT DATE: 20191224
